FAERS Safety Report 15314947 (Version 1)
Quarter: 2018Q3

REPORT INFORMATION
  Report Type: Spontaneous
  Country: US (occurrence: US)
  Receive Date: 20180815
  Receipt Date: 20180815
  Transmission Date: 20181010
  Serious: Yes (Other)
  Sender: FDA-Public Use
  Company Number: None

PATIENT
  Age: 59 Year
  Sex: Male
  Weight: 132.3 kg

DRUGS (2)
  1. VALSARTAN 80 MG TABLET [Suspect]
     Active Substance: VALSARTAN
     Indication: HYPERTENSION
     Dosage: ?          QUANTITY:1 TABLET(S);?
     Route: 048
     Dates: start: 20160401, end: 20180804
  2. MVI [Concomitant]
     Active Substance: VITAMINS

REACTIONS (5)
  - Wound [None]
  - Squamous cell carcinoma [None]
  - Skin exfoliation [None]
  - Basal cell carcinoma [None]
  - Skin cancer [None]

NARRATIVE: CASE EVENT DATE: 20180803
